FAERS Safety Report 7575438-4 (Version None)
Quarter: 2011Q2

REPORT INFORMATION
  Report Type: 
  Country: None (occurrence: None)
  Receive Date: 20110627
  Receipt Date: 20110621
  Transmission Date: 20111010
  Serious: Yes (Death, Other)
  Sender: FDA-Public Use
  Company Number: US-CELGENEUS-163-21880-11052182

PATIENT
  Sex: Female

DRUGS (1)
  1. REVLIMID [Suspect]
     Indication: ACUTE MYELOID LEUKAEMIA RECURRENT
     Dosage: 10 MILLIGRAM
     Route: 048
     Dates: start: 20110505, end: 20110509

REACTIONS (3)
  - ACUTE MYELOID LEUKAEMIA [None]
  - SEPSIS [None]
  - NEUTROPENIA [None]
